FAERS Safety Report 7133939-7 (Version None)
Quarter: 2010Q4

REPORT INFORMATION
  Report Type: 
  Country: None (occurrence: None)
  Receive Date: 20101203
  Receipt Date: 20100930
  Transmission Date: 20110411
  Serious: Yes (Hospitalization)
  Sender: FDA-Public Use
  Company Number: US-BAYER-201038340NA

PATIENT

DRUGS (7)
  1. YAZ [Suspect]
     Route: 048
  2. YASMIN [Suspect]
     Route: 048
     Dates: start: 20020101, end: 20040101
  3. YASMIN [Suspect]
  4. YASMIN [Suspect]
     Indication: ACNE
  5. OCELLA [Suspect]
     Route: 048
  6. PROTONIX [Concomitant]
     Route: 065
  7. REGLAN [Concomitant]
     Route: 065

REACTIONS (4)
  - CHOLECYSTECTOMY [None]
  - GALLBLADDER DISORDER [None]
  - GASTROOESOPHAGEAL REFLUX DISEASE [None]
  - HIATUS HERNIA [None]
